FAERS Safety Report 6879267-6 (Version None)
Quarter: 2010Q3

REPORT INFORMATION
  Report Type: 
  Country: None (occurrence: None)
  Receive Date: 20100728
  Receipt Date: 20100714
  Transmission Date: 20110219
  Serious: Yes (Other)
  Sender: FDA-Public Use
  Company Number: US-PAR PHARMACEUTICAL, INC-2010SCPR001778

PATIENT

DRUGS (1)
  1. TESTOSTERONE [Suspect]
     Indication: ANDROGEN DEFICIENCY
     Dosage: UNK
     Route: 061

REACTIONS (3)
  - CARDIOVASCULAR DISORDER [None]
  - RESPIRATORY DISORDER [None]
  - SKIN DISORDER [None]
